FAERS Safety Report 11795089 (Version 2)
Quarter: 2016Q2

REPORT INFORMATION
  Report Type: Spontaneous
  Country: US (occurrence: US)
  Receive Date: 20151202
  Receipt Date: 20160610
  Transmission Date: 20160815
  Serious: Yes (Other)
  Sender: FDA-Public Use
  Company Number: US-B.I. PHARMACEUTICALS,INC./RIDGEFIELD-2015-BI-66859BI

PATIENT
  Sex: Female

DRUGS (14)
  1. PRADAXA [Suspect]
     Active Substance: DABIGATRAN ETEXILATE MESYLATE
     Indication: PRODUCT USED FOR UNKNOWN INDICATION
     Dosage: 300 MG
     Route: 048
  2. ENOXAPARIN SODIUM. [Concomitant]
     Active Substance: ENOXAPARIN SODIUM
     Dosage: 40 MG
     Route: 058
  3. GADOPENTETATE DIMEALUMINE [Concomitant]
     Dosage: STK-MED ONE
     Route: 042
     Dates: start: 20130102
  4. ALPRAZOLAM. [Concomitant]
     Active Substance: ALPRAZOLAM
     Dosage: 1 MG
     Route: 048
     Dates: start: 20130102
  5. ACETAMINOPHEN. [Concomitant]
     Active Substance: ACETAMINOPHEN
     Dosage: 3900 MG
     Route: 048
     Dates: start: 20130102
  6. PRADAXA [Suspect]
     Active Substance: DABIGATRAN ETEXILATE MESYLATE
     Dosage: 300 MG
     Route: 048
     Dates: start: 20130102
  7. SODIUM CHLORIDE. [Concomitant]
     Active Substance: SODIUM CHLORIDE
     Dosage: Q13H20M
     Route: 042
     Dates: start: 20160102
  8. ATORVASTATIN CALCIUM. [Concomitant]
     Active Substance: ATORVASTATIN CALCIUM
     Dosage: 80 MG
     Route: 048
     Dates: start: 20160102
  9. CEFTRIAXONE SODIUM DEXTROSE [Concomitant]
     Dosage: 1 G
     Route: 042
     Dates: start: 20130103
  10. FLUTICASONE PROPIONATE. [Concomitant]
     Active Substance: FLUTICASONE PROPIONATE
     Dosage: AT BED TIME, NASAL
     Route: 065
     Dates: start: 20160102
  11. DILTIAZEM HCI [Concomitant]
     Dosage: 240 MG
     Route: 048
  12. ANASTROZOLE. [Concomitant]
     Active Substance: ANASTROZOLE
     Dosage: 1 MG
     Route: 048
     Dates: start: 20130103
  13. ASPIRIN BUFFERED [Concomitant]
     Active Substance: ASPIRIN
     Dosage: 325 MG
     Route: 048
     Dates: start: 20130103
  14. SERTRALINE HCI [Concomitant]
     Dosage: 50 MG
     Route: 048
     Dates: start: 20130103

REACTIONS (1)
  - Internal haemorrhage [Unknown]
